FAERS Safety Report 4455138-X (Version None)
Quarter: 2004Q3

REPORT INFORMATION
  Report Type: 
  Country: None (occurrence: None)
  Receive Date: 20040907
  Receipt Date: 20040826
  Transmission Date: 20050211
  Serious: Yes (Hospitalization)
  Sender: FDA-Public Use
  Company Number: CH-GLAXOSMITHKLINE-B0344069A

PATIENT
  Age: 71 Year
  Sex: Female
  Weight: 85 kg

DRUGS (11)
  1. DEROXAT [Suspect]
     Dosage: 30MG PER DAY
     Route: 048
  2. BELOC ZOK [Suspect]
     Indication: CARDIAC FAILURE
     Dosage: 200MG PER DAY
     Route: 048
  3. ZYPREXA [Suspect]
     Dosage: 10MG PER DAY
     Route: 048
  4. TEMESTA [Suspect]
     Dosage: 2.5MG PER DAY
     Route: 048
  5. SEROQUEL [Suspect]
     Dosage: 50MG PER DAY
     Route: 048
  6. ELTROXIN [Concomitant]
     Dosage: .01MG PER DAY
     Route: 048
  7. TOREM [Concomitant]
     Dosage: 10MG PER DAY
     Route: 048
  8. CO-DIOVAN [Concomitant]
     Route: 048
  9. PRAVASTATIN SODIUM [Concomitant]
     Dosage: 40MG PER DAY
     Route: 048
  10. ALDACTONE [Concomitant]
     Dosage: 25MG PER DAY
     Route: 048
  11. MARCOUMAR [Concomitant]
     Indication: DRUG USE FOR UNKNOWN INDICATION
     Route: 048

REACTIONS (8)
  - AGITATION [None]
  - ANTICHOLINERGIC SYNDROME [None]
  - CONFUSIONAL STATE [None]
  - DISORIENTATION [None]
  - DRUG INTERACTION [None]
  - MYDRIASIS [None]
  - PERSEVERATION [None]
  - TACHYCARDIA [None]
